FAERS Safety Report 18327214 (Version 1)
Quarter: 2020Q3

REPORT INFORMATION
  Report Type: Spontaneous
  Country: US (occurrence: US)
  Receive Date: 20200930
  Receipt Date: 20200930
  Transmission Date: 20201103
  Serious: No
  Sender: FDA-Public Use
  Company Number: US-LUPIN PHARMACEUTICALS INC.-2020-03742

PATIENT
  Age: 24 Year
  Sex: Female
  Weight: 92.97 kg

DRUGS (1)
  1. BLISOVI FE 1/20 [Suspect]
     Active Substance: ETHINYL ESTRADIOL\NORETHINDRONE ACETATE
     Indication: CONTRACEPTION
     Dosage: 1 DOSAGE FORM, QD (1 MG/0.02 MG)
     Route: 048
     Dates: start: 20200628

REACTIONS (3)
  - Inappropriate schedule of product administration [Not Recovered/Not Resolved]
  - No adverse event [Unknown]
  - Extra dose administered [Unknown]

NARRATIVE: CASE EVENT DATE: 202007
